FAERS Safety Report 10907107 (Version 1)
Quarter: 2015Q1

REPORT INFORMATION
  Report Type: Spontaneous
  Country: US (occurrence: None)
  Receive Date: 20150309
  Receipt Date: 20150309
  Transmission Date: 20150721
  Serious: Yes (Death, Other)
  Sender: FDA-Public Use
  Company Number: ADR-2015-00472

PATIENT
  Age: 20 Year
  Sex: Male

DRUGS (2)
  1. DICLOFENAC [Suspect]
     Active Substance: DICLOFENAC
  2. BACLOFEN (ORAL) [Suspect]
     Active Substance: BACLOFEN

REACTIONS (3)
  - Completed suicide [None]
  - Poisoning deliberate [None]
  - Toxicity to various agents [None]

NARRATIVE: CASE EVENT DATE: 20130101
